FAERS Safety Report 4932705-8 (Version None)
Quarter: 2006Q1

REPORT INFORMATION
  Report Type: 
  Country: None (occurrence: None)
  Receive Date: 20060301
  Receipt Date: 20060223
  Transmission Date: 20060701
  Serious: Yes (Hospitalization)
  Sender: FDA-Public Use
  Company Number: 702209

PATIENT
  Age: 42 Year
  Sex: Female
  Weight: 58.0604 kg

DRUGS (3)
  1. AMEVIVE [Suspect]
     Indication: PSORIASIS
     Dosage: 15 MG; QW; IM
     Route: 030
     Dates: start: 20030528, end: 20030814
  2. LITHIUM [Concomitant]
  3. METHOTREXATE [Concomitant]

REACTIONS (8)
  - ANIMAL SCRATCH [None]
  - CELLULITIS [None]
  - DYSPHONIA [None]
  - ERYTHEMA [None]
  - FOLLICULAR THYROID CANCER [None]
  - LOCALISED INFECTION [None]
  - PAPILLARY THYROID CANCER [None]
  - WOUND COMPLICATION [None]
